FAERS Safety Report 4568115-5 (Version None)
Quarter: 2005Q1

REPORT INFORMATION
  Report Type: 
  Country: None (occurrence: None)
  Receive Date: 20050131
  Receipt Date: 20040729
  Transmission Date: 20050727
  Serious: Yes (Hospitalization)
  Sender: FDA-Public Use
  Company Number: 8579

PATIENT
  Age: 21 Year
  Sex: Female

DRUGS (3)
  1. CYTARABINE [Suspect]
     Indication: DIFFUSE LARGE B-CELL LYMPHOMA
     Dosage: 3000MG/M2
  2. DEXAMETHASONE [Concomitant]
  3. METHOTREXATE [Concomitant]

REACTIONS (1)
  - IRIDOCYCLITIS [None]
